FAERS Safety Report 6838954-6 (Version None)
Quarter: 2010Q3

REPORT INFORMATION
  Report Type: 
  Country: None (occurrence: None)
  Receive Date: 20100713
  Receipt Date: 20071211
  Transmission Date: 20110219
  Serious: No
  Sender: FDA-Public Use
  Company Number: US-PFIZER INC-2007045678

PATIENT
  Sex: Female

DRUGS (6)
  1. CHANTIX [Suspect]
     Indication: SMOKING CESSATION THERAPY
     Route: 048
     Dates: start: 20070101, end: 20070526
  2. SYNTHROID [Concomitant]
     Indication: BASEDOW'S DISEASE
  3. PRAVACHOL [Concomitant]
  4. LISINOPRIL [Concomitant]
  5. ZYRTEC [Concomitant]
     Indication: HYPERSENSITIVITY
  6. ACTIVELLA [Concomitant]

REACTIONS (2)
  - DISORIENTATION [None]
  - DIZZINESS [None]
